FAERS Safety Report 10071618 (Version 2)
Quarter: 2014Q2

REPORT INFORMATION
  Report Type: Report from Study
  Country: MX (occurrence: MX)
  Receive Date: 20140410
  Receipt Date: 20140422
  Transmission Date: 20141212
  Serious: Yes (Hospitalization)
  Sender: FDA-Public Use
  Company Number: MX-BRISTOL-MYERS SQUIBB COMPANY-20588802

PATIENT
  Age: 79 Year
  Sex: Female

DRUGS (12)
  1. ABATACEPT SUBQ INJECTION 125MG/ML [Suspect]
     Indication: RHEUMATOID ARTHRITIS
     Dosage: 1DF: 125MG/ML?LAST DOSE OF ABATACEPT ON 15-JAN-2014
     Route: 058
     Dates: start: 20080929, end: 20140115
  2. METHOTREXATE [Suspect]
     Dates: start: 20050202
  3. METHIMAZOLE [Concomitant]
     Dates: start: 19930208
  4. DICLOFENAC [Concomitant]
     Dates: start: 20080710
  5. OMEPRAZOLE [Concomitant]
     Dates: start: 2008
  6. FOLIC ACID [Concomitant]
     Dates: start: 20100114
  7. ACETYLSALICYLIC ACID [Concomitant]
     Dates: start: 20100219
  8. DOLO-NEUROBION [Concomitant]
     Dates: start: 201208
  9. DIOSMIN [Concomitant]
     Dates: start: 201210
  10. SPIRONOLACTONE [Concomitant]
     Dates: start: 20131228
  11. FUROSEMIDE [Concomitant]
     Dates: start: 20131228
  12. CLOPIDOGREL BISULFATE [Concomitant]
     Dates: start: 20131228

REACTIONS (1)
  - Cerebral artery embolism [Recovered/Resolved]
